FAERS Safety Report 5280826-5 (Version None)
Quarter: 2007Q1

REPORT INFORMATION
  Report Type: 
  Country: None (occurrence: None)
  Receive Date: 20070329
  Receipt Date: 20070321
  Transmission Date: 20070707
  Serious: Yes (Other)
  Sender: FDA-Public Use
  Company Number: US-PFIZER INC-2007022923

PATIENT
  Sex: Female
  Weight: 65.8 kg

DRUGS (1)
  1. XANAX [Suspect]
     Indication: POST-TRAUMATIC STRESS DISORDER
     Dosage: DAILY DOSE:10MG

REACTIONS (11)
  - DRUG WITHDRAWAL SYNDROME [None]
  - FATIGUE [None]
  - FEELING COLD [None]
  - GAIT DISTURBANCE [None]
  - HYPERHIDROSIS [None]
  - INSOMNIA [None]
  - OVERDOSE [None]
  - RASH [None]
  - VERTIGO [None]
  - VISION BLURRED [None]
  - VOMITING [None]
